FAERS Safety Report 4902488-6 (Version None)
Quarter: 2006Q1

REPORT INFORMATION
  Report Type: 
  Country: None (occurrence: None)
  Receive Date: 20060207
  Receipt Date: 20030212
  Transmission Date: 20060701
  Serious: Yes (Death, Hospitalization)
  Sender: FDA-Public Use
  Company Number: PHBS2003ES01882

PATIENT
  Age: 53 Year
  Sex: Female
  Weight: 69 kg

DRUGS (6)
  1. SANDIMMUNE [Suspect]
     Indication: RENAL TRANSPLANT
     Dosage: 10 MG/KG/D
  2. METHYLPREDNISOLONE [Suspect]
     Indication: RENAL TRANSPLANT
     Dosage: 125 MG/D
     Route: 042
  3. METHYLPREDNISOLONE [Suspect]
     Dosage: 500 MG/D
     Route: 042
  4. PREDNISONE [Suspect]
     Indication: RENAL TRANSPLANT
     Dosage: TAPERING TO 10 MG/D
     Route: 048
  5. SIMULECT [Suspect]
     Indication: RENAL TRANSPLANT
     Dosage: 20 MG/D
     Route: 065
  6. SIMULECT [Suspect]
     Dosage: 20 MG/D
     Route: 065

REACTIONS (16)
  - AORTIC BYPASS [None]
  - ARTERIOVENOUS FISTULA [None]
  - ASPERGILLOSIS [None]
  - BLOOD CREATININE INCREASED [None]
  - HAEMATOMA [None]
  - KIDNEY TRANSPLANT REJECTION [None]
  - NEPHRECTOMY [None]
  - PARAESTHESIA [None]
  - PERIPHERAL ARTERY ANEURYSM [None]
  - PERIPHERAL COLDNESS [None]
  - PULSE ABNORMAL [None]
  - RENAL IMPAIRMENT [None]
  - SCIATICA [None]
  - SHOCK HAEMORRHAGIC [None]
  - SURGERY [None]
  - VASCULAR PSEUDOANEURYSM [None]
